FAERS Safety Report 8399393-2 (Version None)
Quarter: 2012Q2

REPORT INFORMATION
  Report Type: 
  Country: None (occurrence: None)
  Receive Date: 20120531
  Receipt Date: 20120517
  Transmission Date: 20120825
  Serious: No
  Sender: FDA-Public Use
  Company Number: US-ASTRAZENECA-2012SE32342

PATIENT
  Age: 46 Year
  Sex: Female
  Weight: 138.3 kg

DRUGS (1)
  1. SEROQUEL [Suspect]
     Indication: SLEEP DISORDER
     Route: 048
     Dates: start: 20110101

REACTIONS (2)
  - DRUG PRESCRIBING ERROR [None]
  - HEADACHE [None]
